FAERS Safety Report 9853383 (Version 1)
Quarter: 2014Q1

REPORT INFORMATION
  Report Type: Spontaneous
  Country: IN (occurrence: IN)
  Receive Date: 20140129
  Receipt Date: 20140129
  Transmission Date: 20141002
  Serious: Yes (Death)
  Sender: FDA-Public Use
  Company Number: IN-MYLANLABS-2014S1001661

PATIENT
  Age: 31 Day
  Sex: Male

DRUGS (10)
  1. EPINEPHRINE [Suspect]
     Indication: SHOCK
  2. VANCOMYCIN HYDROCHLORIDE [Suspect]
     Indication: STAPHYLOCOCCAL SCALDED SKIN SYNDROME
  3. CEFTAZIDIME [Suspect]
     Indication: STAPHYLOCOCCAL SCALDED SKIN SYNDROME
  4. ACICLOVIR [Suspect]
     Indication: VARICELLA
  5. DOPAMINE [Suspect]
     Indication: SHOCK
  6. DOBUTAMINE [Suspect]
     Indication: SHOCK
  7. MUPIROCIN [Suspect]
     Indication: STAPHYLOCOCCAL SCALDED SKIN SYNDROME
     Route: 061
  8. VASELINE [Suspect]
     Indication: VARICELLA
     Route: 061
  9. VASELINE [Suspect]
     Indication: STAPHYLOCOCCAL SCALDED SKIN SYNDROME
     Route: 061
  10. NORMAL SALINE [Suspect]
     Indication: SHOCK
     Dosage: X2 IV BOLUSES
     Route: 042

REACTIONS (5)
  - Drug ineffective [Not Recovered/Not Resolved]
  - Varicella [Not Recovered/Not Resolved]
  - Staphylococcal scalded skin syndrome [Not Recovered/Not Resolved]
  - Staphylococcal sepsis [Fatal]
  - Toxic shock syndrome [Fatal]
